FAERS Safety Report 25361995 (Version 1)
Quarter: 2025Q2

REPORT INFORMATION
  Report Type: Spontaneous
  Country: US (occurrence: None)
  Receive Date: 20250524
  Receipt Date: 20250524
  Transmission Date: 20250717
  Serious: Yes (Other)
  Sender: FDA-CTU
  Company Number: None

PATIENT
  Age: 61 Year
  Sex: Female
  Weight: 73.2 kg

DRUGS (21)
  1. CEFTRIAXONE [Suspect]
     Active Substance: CEFTRIAXONE
     Indication: Arthritis infective
     Dosage: FREQUENCY : DAILY;?
     Route: 041
     Dates: start: 20250114, end: 20250130
  2. CEFTRIAXONE [Suspect]
     Active Substance: CEFTRIAXONE
     Indication: Device related infection
  3. Ascorbic Acid Tab 500mg [Concomitant]
     Dates: start: 20250128, end: 20250202
  4. Aspirin Enteric Coded Tab 81mg [Concomitant]
     Dates: start: 20250129, end: 20250202
  5. Cefazolin 2g IV solution [Concomitant]
     Dates: start: 20250110, end: 20250114
  6. Cefazolin 2g IV solution [Concomitant]
     Dates: start: 20250131, end: 20250201
  7. Vancomycin 1250mg IV solution [Concomitant]
     Dates: start: 20250128, end: 20250128
  8. Tranexamic Acid 768mg IV solution [Concomitant]
     Dates: start: 20250128, end: 20250128
  9. Fentanyl 25mcg IV solution [Concomitant]
     Dates: start: 20250128, end: 20250128
  10. Oxycodone 5mg Tab [Concomitant]
     Dates: start: 20250127, end: 20250131
  11. LEVOTHYROXINE SODIUM [Concomitant]
     Active Substance: LEVOTHYROXINE SODIUM
     Dates: start: 20250128, end: 20250202
  12. Pantoprazole Tab 40mg [Concomitant]
     Dates: start: 20250128, end: 20250202
  13. Ferrous sulfate Tab 325mg [Concomitant]
     Dates: start: 20250128, end: 20250202
  14. Folic acid Tab 1mg [Concomitant]
     Dates: start: 20250128, end: 20250202
  15. Tab-A-Vite Tab [Concomitant]
     Dates: start: 20250128, end: 20250202
  16. Thiamine Tab 100mg [Concomitant]
     Dates: start: 20250129, end: 20250202
  17. Vitamin D Cap 1,000U [Concomitant]
     Dates: start: 20250128, end: 20250202
  18. Cyanocobalamin Tab 1,000mcg [Concomitant]
     Dates: start: 20250128, end: 20250202
  19. Zinc Sulfate Cap 220mg [Concomitant]
     Dates: start: 20250129, end: 20250202
  20. Magnesium-Oxide Tab 400mg [Concomitant]
     Dates: start: 20250127, end: 20250202
  21. Senna-Docusate Sodium 8.5-50mg Tab [Concomitant]
     Dates: start: 20250128, end: 20250202

REACTIONS (5)
  - Post procedural drainage [None]
  - Anaemia [None]
  - Leukopenia [None]
  - Thrombocytopenia [None]
  - Adverse drug reaction [None]

NARRATIVE: CASE EVENT DATE: 20250131
